FAERS Safety Report 24762225 (Version 1)
Quarter: 2024Q4

REPORT INFORMATION
  Report Type: Spontaneous
  Country: US (occurrence: US)
  Receive Date: 20241221
  Receipt Date: 20241221
  Transmission Date: 20250115
  Serious: No
  Sender: ABBVIE
  Company Number: US-ABBVIE-6056793

PATIENT
  Sex: Female

DRUGS (3)
  1. BOTOX COSMETIC [Suspect]
     Active Substance: ONABOTULINUMTOXINA
     Indication: Skin cosmetic procedure
     Dosage: TIME INTERVAL: AS NECESSARY
     Route: 065
     Dates: start: 20241125, end: 20241125
  2. BOTOX COSMETIC [Suspect]
     Active Substance: ONABOTULINUMTOXINA
     Indication: Skin cosmetic procedure
     Dosage: TIME INTERVAL: AS NECESSARY
     Route: 065
     Dates: start: 202412, end: 202412
  3. JUVEDERM [Suspect]
     Active Substance: HYALURONIC ACID
     Indication: Product used for unknown indication
     Route: 065

REACTIONS (1)
  - Lip disorder [Unknown]

NARRATIVE: CASE EVENT DATE: 20241201
